FAERS Safety Report 8223675-8 (Version None)
Quarter: 2012Q1

REPORT INFORMATION
  Report Type: 
  Country: None (occurrence: None)
  Receive Date: 20120321
  Receipt Date: 20120313
  Transmission Date: 20120608
  Serious: Yes (Hospitalization)
  Sender: FDA-Public Use
  Company Number: DE-UCBSA-032815

PATIENT
  Sex: Female
  Weight: 72 kg

DRUGS (13)
  1. BISOPROLOL FUMARATE [Concomitant]
     Indication: HYPERTENSION
     Dates: start: 20101101
  2. PREDNISONE TAB [Concomitant]
     Indication: RHEUMATOID ARTHRITIS
     Dates: start: 20060101
  3. VALSARTAN [Concomitant]
     Indication: HYPERTENSION
     Dates: start: 20101101
  4. CERTOLIZUMAB PEGOL [Suspect]
     Indication: RHEUMATOID ARTHRITIS
     Dosage: NO OF DOSES RECEIVED: 3X2 READY TO USE SYRINGE
     Route: 058
     Dates: start: 20110223, end: 20110404
  5. AMLODIPINE [Concomitant]
     Indication: HYPERTENSION
     Dates: start: 20100601
  6. ENBREL [Concomitant]
     Indication: RHEUMATOID ARTHRITIS
     Dates: start: 20090901, end: 20110201
  7. LEVOTHYROXINE SODIUM [Concomitant]
     Indication: GOITRE
     Dates: start: 20060101
  8. MIRTAZAPINE [Concomitant]
     Indication: DEPRESSION
     Dates: start: 20100901
  9. OMEPRAZOLE [Concomitant]
     Indication: GASTRITIS
     Dates: start: 20060101
  10. SIMVABETA [Concomitant]
     Indication: HYPERLIPIDAEMIA
     Dates: start: 20060101
  11. DEKRISTOL [Concomitant]
     Indication: OSTEOPOROSIS PROPHYLAXIS
     Dosage: DOSE: 20,000 IE; FREQ: BIM
     Dates: start: 20101101
  12. MARCUMAR [Concomitant]
     Indication: PULMONARY EMBOLISM
     Dosage: DOSE: ACCORDING TO QUICK'S
     Dates: start: 20040101
  13. ACETAMINOPHEN [Concomitant]
     Indication: SPONDYLOARTHROPATHY
     Dates: start: 20100501

REACTIONS (1)
  - RASH [None]
